FAERS Safety Report 24981576 (Version 1)
Quarter: 2025Q1

REPORT INFORMATION
  Report Type: Spontaneous
  Country: TR (occurrence: TR)
  Receive Date: 20250218
  Receipt Date: 20250218
  Transmission Date: 20250409
  Serious: Yes (Death, Other)
  Sender: PFIZER
  Company Number: TR-PFIZER INC-PV202500018182

PATIENT
  Age: 16 Year
  Sex: Female

DRUGS (8)
  1. VORICONAZOLE [Suspect]
     Active Substance: VORICONAZOLE
     Indication: Neutropenic sepsis
  2. VORICONAZOLE [Suspect]
     Active Substance: VORICONAZOLE
     Indication: Aspergillus infection
  3. VORICONAZOLE [Suspect]
     Active Substance: VORICONAZOLE
     Indication: Fungal infection
  4. VORICONAZOLE [Suspect]
     Active Substance: VORICONAZOLE
     Indication: Stenotrophomonas infection
  5. AMPHOTERICIN B [Suspect]
     Active Substance: AMPHOTERICIN B
     Indication: Fungal infection
  6. AMPHOTERICIN B [Suspect]
     Active Substance: AMPHOTERICIN B
     Indication: Aspergillus infection
  7. AMPHOTERICIN B [Suspect]
     Active Substance: AMPHOTERICIN B
     Indication: Fungal infection
  8. AMPHOTERICIN B [Suspect]
     Active Substance: AMPHOTERICIN B
     Indication: Stenotrophomonas infection

REACTIONS (1)
  - Drug ineffective [Fatal]
